FAERS Safety Report 11278604 (Version 1)
Quarter: 2015Q3

REPORT INFORMATION
  Report Type: Other
  Country: GB (occurrence: GB)
  Receive Date: 20150717
  Receipt Date: 20150717
  Transmission Date: 20151125
  Serious: Yes (Other)
  Sender: FDA-Public Use
  Company Number: GB-TARO PHARMACEUTICALS U.S.A., INC-2015SUN01609

PATIENT
  Age: 86 Year
  Sex: Male
  Weight: 75 kg

DRUGS (8)
  1. MIRTAZAPINE. [Concomitant]
     Active Substance: MIRTAZAPINE
     Dosage: 1 DF, QD (AT NIGHT)
     Dates: start: 20140917
  2. OPTIFLO C [Concomitant]
     Dosage: UNK (USE AS DIRECTED)
     Dates: start: 20150507
  3. SERTRALINE [Concomitant]
     Active Substance: SERTRALINE HYDROCHLORIDE
     Dosage: 1 DF, QD
     Dates: start: 20150126
  4. WARFARIN [Suspect]
     Active Substance: WARFARIN
     Indication: PRODUCT USED FOR UNKNOWN INDICATION
     Dosage: UNK
     Route: 065
     Dates: start: 20150626
  5. RIVAROXABAN [Concomitant]
     Active Substance: RIVAROXABAN
     Indication: ANTICOAGULANT THERAPY
     Dosage: 1 DF, UNK (ONE DAILY AS DIRECTED)
     Dates: start: 20150626
  6. SIMVASTATIN. [Concomitant]
     Active Substance: SIMVASTATIN
     Dosage: 1 DF, QD (AT NIGHT)
     Dates: start: 20150220
  7. ASPIRIN. [Concomitant]
     Active Substance: ASPIRIN
     Dosage: 2 DF, QD
     Dates: start: 20131216
  8. BISOPROLOL [Concomitant]
     Active Substance: BISOPROLOL
     Dosage: 1 DF, QD
     Dates: start: 20141128

REACTIONS (2)
  - Balance disorder [Unknown]
  - Confusional state [Unknown]

NARRATIVE: CASE EVENT DATE: 20150626
